FAERS Safety Report 16305157 (Version 1)
Quarter: 2019Q2

REPORT INFORMATION
  Report Type: Spontaneous
  Country: US (occurrence: US)
  Receive Date: 20190513
  Receipt Date: 20190513
  Transmission Date: 20190711
  Serious: Yes (Death, Hospitalization, Other)
  Sender: FDA-Public Use
  Company Number: US-SA-2019SA126109

PATIENT
  Age: 81 Year
  Sex: Female
  Weight: 53.7 kg

DRUGS (32)
  1. FLUOROURACIL. [Suspect]
     Active Substance: FLUOROURACIL
     Dosage: 600 UNK, QCY
     Route: 040
     Dates: start: 20171214, end: 20171214
  2. TRAZODONE [Concomitant]
     Active Substance: TRAZODONE HYDROCHLORIDE
     Dosage: UNK UNK, UNK
     Route: 065
     Dates: start: 20120223
  3. LORAZEPAM. [Concomitant]
     Active Substance: LORAZEPAM
     Dosage: UNK UNK, UNK
     Route: 065
     Dates: start: 20171214
  4. PROBIOTICA [Concomitant]
     Active Substance: PROBIOTICS NOS
     Dosage: UNK UNK, UNK
     Route: 065
     Dates: start: 20150910
  5. POLYETHYLENE GLYCOL [Concomitant]
     Active Substance: POLYETHYLENE GLYCOLS
     Dosage: UNK UNK, UNK
     Route: 065
     Dates: start: 20171211
  6. FLUOROURACIL. [Suspect]
     Active Substance: FLUOROURACIL
     Dosage: UNK UNK, QCY
     Route: 042
     Dates: start: 20180630, end: 20180630
  7. LEUCOVORIN [CALCIUM FOLINATE] [Suspect]
     Active Substance: LEUCOVORIN
     Indication: PANCREATIC CARCINOMA METASTATIC
     Dosage: 600 MG, QCY
     Route: 042
     Dates: start: 20171214, end: 20171214
  8. LEVOTHYROXINE. [Concomitant]
     Active Substance: LEVOTHYROXINE
     Dosage: UNK UNK, UNK
     Route: 065
     Dates: start: 20150911
  9. FISH OIL [Concomitant]
     Active Substance: FISH OIL
     Dosage: UNK UNK, UNK
     Route: 065
     Dates: start: 20120217
  10. ASPIRIN [ACETYLSALICYLIC ACID] [Concomitant]
     Active Substance: ASPIRIN
     Dosage: UNK UNK, UNK
     Route: 065
     Dates: start: 20120217
  11. VITAMIN D NOS [Concomitant]
     Active Substance: VITAMIN D NOS
     Dosage: UNK UNK, UNK
     Route: 065
     Dates: start: 20140310
  12. PROTEASE [Concomitant]
     Active Substance: PROTEASE
     Dosage: UNK UNK, UNK
     Route: 065
     Dates: start: 20171102
  13. AMYLASE [Concomitant]
     Active Substance: AMYLASE
     Dosage: UNK UNK, UNK
     Route: 065
     Dates: start: 20171102
  14. FLUOROURACIL. [Suspect]
     Active Substance: FLUOROURACIL
     Indication: PANCREATIC CARCINOMA METASTATIC
     Dosage: 3500 MG, QCY
     Route: 042
     Dates: start: 20171214, end: 20171214
  15. LEUCOVORIN [CALCIUM FOLINATE] [Suspect]
     Active Substance: LEUCOVORIN
     Dosage: UNK UNK, QCY
     Route: 042
     Dates: start: 20180628, end: 20180628
  16. PEGILODECAKIN [Suspect]
     Active Substance: PEGILODECAKIN
     Indication: PANCREATIC CARCINOMA METASTATIC
     Dosage: 0.4 MG, QCY
     Route: 058
     Dates: start: 20171214, end: 20171214
  17. LATANAPROST/TIMOLOL [Concomitant]
     Active Substance: LATANOPROST\TIMOLOL
     Dosage: UNK UNK, UNK
     Route: 065
  18. ALENDRONATE [Concomitant]
     Active Substance: ALENDRONATE SODIUM
     Dosage: UNK UNK, UNK
     Route: 065
     Dates: start: 20140310
  19. LIPASE [Concomitant]
     Active Substance: LIPASE
     Dosage: UNK UNK, UNK
     Route: 065
     Dates: start: 20171102
  20. OXALIPLATIN. [Suspect]
     Active Substance: OXALIPLATIN
     Indication: PANCREATIC CARCINOMA METASTATIC
     Dosage: 130 MG, QCY
     Route: 042
     Dates: start: 20171214, end: 20171214
  21. ASPIRIN [ACETYLSALICYLIC ACID] [Concomitant]
     Active Substance: ASPIRIN
     Dosage: UNK UNK, UNK
     Route: 065
  22. MULTIVITAMINS [VITAMINS NOS] [Concomitant]
     Active Substance: VITAMINS
     Dosage: UNK UNK, UNK
     Route: 065
     Dates: start: 20120217
  23. CALCIUM CARBONATE. [Concomitant]
     Active Substance: CALCIUM CARBONATE
     Dosage: UNK UNK, UNK
     Route: 065
     Dates: start: 20140304
  24. SIMVASTATIN. [Concomitant]
     Active Substance: SIMVASTATIN
     Dosage: UNK UNK, UNK
     Route: 065
     Dates: start: 20160119
  25. LATANAPROST/TIMOLOL [Concomitant]
     Active Substance: LATANOPROST\TIMOLOL
     Dosage: 0.005 %, UNK
     Route: 065
     Dates: start: 20161122
  26. OXALIPLATIN. [Suspect]
     Active Substance: OXALIPLATIN
     Dosage: UNK UNK, QCY
     Route: 042
     Dates: start: 20180628, end: 20180628
  27. PEGILODECAKIN [Suspect]
     Active Substance: PEGILODECAKIN
     Dosage: UNK UNK, QCY
     Route: 058
     Dates: start: 20180707, end: 20180707
  28. PAXIL [Concomitant]
     Active Substance: PAROXETINE HYDROCHLORIDE
     Dosage: UNK UNK, UNK
     Route: 065
     Dates: start: 20120223
  29. DEXAMETHASONE. [Concomitant]
     Active Substance: DEXAMETHASONE
     Dosage: UNK UNK, UNK
     Route: 065
     Dates: start: 20171214
  30. PRILOSEC [Concomitant]
     Active Substance: OMEPRAZOLE MAGNESIUM
     Dosage: UNK UNK, UNK
     Route: 065
     Dates: start: 20120217
  31. LOPERAMIDE [Concomitant]
     Active Substance: LOPERAMIDE
     Dosage: UNK UNK, UNK
     Route: 065
     Dates: start: 20171214, end: 20180710
  32. OXYCODONE [Concomitant]
     Active Substance: OXYCODONE
     Dosage: UNK UNK, UNK
     Route: 065
     Dates: start: 20170913

REACTIONS (3)
  - Chills [Recovered/Resolved]
  - Pneumonia [Recovered/Resolved]
  - Pyrexia [Recovered/Resolved]

NARRATIVE: CASE EVENT DATE: 20180709
